FAERS Safety Report 21673589 (Version 1)
Quarter: 2022Q4

REPORT INFORMATION
  Report Type: Spontaneous
  Country: US (occurrence: None)
  Receive Date: 20221201
  Receipt Date: 20221201
  Transmission Date: 20230112
  Serious: Yes (Other)
  Sender: FDA-Public Use
  Company Number: None

PATIENT
  Age: 23 Year
  Sex: Female
  Weight: 58.5 kg

DRUGS (23)
  1. HUMIRA [Suspect]
     Active Substance: ADALIMUMAB
     Indication: Rheumatoid arthritis
     Dosage: OTHER STRENGTH : 40 MG/0.8 ML;?OTHER QUANTITY : 1 INJECTION(S);?OTHER FREQUENCY : EVERY OTHER WEEK;?
     Route: 058
     Dates: start: 20160624, end: 20211116
  2. HUMIRA [Suspect]
     Active Substance: ADALIMUMAB
     Indication: Ankylosing spondylitis
  3. PENTASA [Concomitant]
     Active Substance: MESALAMINE
  4. NALTREXONE [Concomitant]
     Active Substance: NALTREXONE
  5. CAMRESE [Concomitant]
     Active Substance: ETHINYL ESTRADIOL\LEVONORGESTREL
  6. FOLIC ACID [Concomitant]
     Active Substance: FOLIC ACID
  7. METHOTREXATE [Concomitant]
     Active Substance: METHOTREXATE
  8. GABAPENTIN [Concomitant]
     Active Substance: GABAPENTIN
  9. MEDROL [Concomitant]
     Active Substance: METHYLPREDNISOLONE
  10. METOPROLOL TARTRATE [Concomitant]
     Active Substance: METOPROLOL TARTRATE
  11. CYMBALTA [Concomitant]
     Active Substance: DULOXETINE HYDROCHLORIDE
  12. FLEXERIL [Concomitant]
     Active Substance: CYCLOBENZAPRINE HYDROCHLORIDE
  13. DULCOLAX NOS [Concomitant]
     Active Substance: BISACODYL OR DOCUSATE SODIUM
  14. MIRALAX [Concomitant]
     Active Substance: POLYETHYLENE GLYCOL 3350
  15. OMEPRAZOLE [Concomitant]
     Active Substance: OMEPRAZOLE
  16. PROBIOTICS NOS [Concomitant]
     Active Substance: PROBIOTICS NOS
  17. BIOTIN [Concomitant]
     Active Substance: BIOTIN
  18. CALCIUM\MAGNESIUM [Concomitant]
     Active Substance: CALCIUM\MAGNESIUM
  19. green tea extract [Concomitant]
  20. HERBALS\TURMERIC [Concomitant]
     Active Substance: HERBALS\TURMERIC
  21. VITAMINS [Concomitant]
     Active Substance: VITAMINS
  22. VITAMIN B12 [Concomitant]
     Active Substance: CYANOCOBALAMIN
  23. TYLENOL ARTHRITIS PAIN [Concomitant]
     Active Substance: ACETAMINOPHEN

REACTIONS (3)
  - Guttate psoriasis [None]
  - Drug hypersensitivity [None]
  - Therapy cessation [None]

NARRATIVE: CASE EVENT DATE: 20210813
